FAERS Safety Report 7512013-1 (Version None)
Quarter: 2011Q2

REPORT INFORMATION
  Report Type: 
  Country: None (occurrence: None)
  Receive Date: 20110520
  Receipt Date: 20110512
  Transmission Date: 20111010
  Serious: Yes (Hospitalization)
  Sender: FDA-Public Use
  Company Number: WAES 1105USA02199

PATIENT
  Age: 51 Year
  Sex: Male

DRUGS (6)
  1. ASPEGIC 325 [Concomitant]
  2. HYDROXYZINE HYDROCHLORIDE [Concomitant]
  3. RACEADOTRIL [Concomitant]
  4. ENOXAPARIN SODIUM [Concomitant]
  5. TAB ISENTRESS (RALTEGRAVIR POTASSIUM) [Suspect]
     Indication: HUMAN IMMUNODEFICIENCY VIRUS TRANSMISSION
     Dosage: 400 MG/BID PO
     Route: 048
     Dates: start: 20110121
  6. PAROXETINE HCL [Concomitant]

REACTIONS (4)
  - ANXIETY [None]
  - THROMBOCYTOPENIA [None]
  - APHASIA [None]
  - INSOMNIA [None]
